FAERS Safety Report 7773732-5 (Version None)
Quarter: 2011Q3

REPORT INFORMATION
  Report Type: 
  Country: None (occurrence: None)
  Receive Date: 20110923
  Receipt Date: 20110912
  Transmission Date: 20111222
  Serious: No
  Sender: FDA-Public Use
  Company Number: US-B.I. PHARMACEUTICALS,INC./RIDGEFIELD-2011-BP-22019BP

PATIENT
  Age: 6 Year
  Sex: Male

DRUGS (1)
  1. ZANTAC [Suspect]
     Route: 048
     Dates: start: 20110912, end: 20110912

REACTIONS (1)
  - ACCIDENTAL DRUG INTAKE BY CHILD [None]
